FAERS Safety Report 8604482-0 (Version None)
Quarter: 2012Q3

REPORT INFORMATION
  Report Type: 
  Country: None (occurrence: None)
  Receive Date: 20120820
  Receipt Date: 20120809
  Transmission Date: 20120928
  Serious: Yes (Hospitalization, Other)
  Sender: FDA-Public Use
  Company Number: US-BAYER-201019674NA

PATIENT
  Age: 27 Year
  Sex: Female
  Weight: 68.182 kg

DRUGS (8)
  1. LEVAQUIN [Concomitant]
  2. FLAGYL [Concomitant]
  3. VICODIN [Concomitant]
  4. VIRAL VACCINES [Concomitant]
     Dosage: 0.5 ML, UNK
     Route: 030
  5. YASMIN [Suspect]
     Indication: CONTRACEPTION
     Dosage: UNK
     Route: 048
     Dates: start: 20010101, end: 20080101
  6. ZOLOFT [Concomitant]
  7. PEPCID [Concomitant]
  8. LORTAB [Concomitant]

REACTIONS (6)
  - COLITIS ISCHAEMIC [None]
  - RECTAL HAEMORRHAGE [None]
  - ABDOMINAL PAIN [None]
  - DIARRHOEA [None]
  - THROMBOPHLEBITIS SUPERFICIAL [None]
  - VOMITING [None]
